FAERS Safety Report 12311505 (Version 1)
Quarter: 2016Q2

REPORT INFORMATION
  Report Type: Report from Study
  Country: US (occurrence: US)
  Receive Date: 20160427
  Receipt Date: 20160427
  Transmission Date: 20160815
  Serious: Yes (Other)
  Sender: FDA-Public Use
  Company Number: US-UCBSA-2015017794

PATIENT
  Age: 68 Year
  Sex: Female
  Weight: 59 kg

DRUGS (8)
  1. CIPRO [Concomitant]
     Active Substance: CIPROFLOXACIN HYDROCHLORIDE
     Indication: STAPHYLOCOCCAL INFECTION
     Dosage: UNK
     Dates: start: 20160215
  2. ROTIGOTINE [Suspect]
     Active Substance: ROTIGOTINE
     Indication: RESTLESS LEGS SYNDROME
     Dosage: 2 MG, ONCE DAILY (QD), EXPIRATION DATE: 08-JUL-2017
     Route: 062
     Dates: start: 2014
  3. DEXILANT [Concomitant]
     Active Substance: DEXLANSOPRAZOLE
     Indication: ULCER
     Dosage: UNK, ONCE DAILY (QD) X 60 DAYS
     Dates: start: 20150415
  4. RIFAMPIN. [Concomitant]
     Active Substance: RIFAMPIN
     Indication: STAPHYLOCOCCAL INFECTION
     Dosage: UNK
     Dates: start: 20160215
  5. REQUIP [Suspect]
     Active Substance: ROPINIROLE HYDROCHLORIDE
     Indication: RESTLESS LEGS SYNDROME
     Dosage: 1MG, DAILY
     Route: 048
  6. IMITREX [Concomitant]
     Active Substance: SUMATRIPTAN SUCCINATE
     Indication: MIGRAINE
     Dosage: DOSE UNKNOWN IN MG, AS NEEDED (PRN)
     Route: 048
  7. TRAMADOL. [Concomitant]
     Active Substance: TRAMADOL
     Indication: PAIN
     Dosage: 50 MG, QHS
     Route: 048
     Dates: start: 201404
  8. ROTIGOTINE [Suspect]
     Active Substance: ROTIGOTINE
     Dosage: 1 MG, UNK
     Route: 062

REACTIONS (16)
  - Application site erythema [Recovering/Resolving]
  - Weight increased [Recovering/Resolving]
  - Osteomyelitis [Unknown]
  - Dizziness [Recovering/Resolving]
  - Device breakage [Unknown]
  - Application site rash [Recovering/Resolving]
  - Ulcer [Unknown]
  - Restless legs syndrome [Not Recovered/Not Resolved]
  - Staphylococcal infection [Unknown]
  - Application site swelling [Recovering/Resolving]
  - Tinnitus [Recovering/Resolving]
  - Product quality issue [Unknown]
  - Joint swelling [Not Recovered/Not Resolved]
  - Drug ineffective [Unknown]
  - Pain in extremity [Not Recovered/Not Resolved]
  - Feeling abnormal [Recovering/Resolving]

NARRATIVE: CASE EVENT DATE: 2014
